FAERS Safety Report 24109846 (Version 3)
Quarter: 2024Q4

REPORT INFORMATION
  Report Type: Report from Study
  Country: US (occurrence: US)
  Receive Date: 20240718
  Receipt Date: 20241023
  Transmission Date: 20250115
  Serious: Yes (Other)
  Sender: MERCK
  Company Number: US-009507513-2407USA010052

PATIENT
  Sex: Male

DRUGS (4)
  1. SOTATERCEPT [Suspect]
     Active Substance: SOTATERCEPT
     Indication: Pulmonary arterial hypertension
     Dosage: 0.3 MILLIGRAM/KILOGRAM, Q3W, STRENGTH: 60 MG
     Route: 058
     Dates: start: 202407
  2. WINREVAIR [Suspect]
     Active Substance: SOTATERCEPT-CSRK
     Indication: Pulmonary arterial hypertension
     Dosage: 2.3 MILLILITER, Q3W
     Route: 058
     Dates: start: 202407
  3. TADALAFIL [Concomitant]
     Active Substance: TADALAFIL
  4. TYVASO DPI [Concomitant]
     Active Substance: TREPROSTINIL

REACTIONS (7)
  - Haematemesis [Recovered/Resolved]
  - Ascites [Unknown]
  - Gastric infection [Recovered/Resolved]
  - Myalgia [Unknown]
  - Dyspnoea exertional [Unknown]
  - Dizziness [Unknown]
  - Flushing [Unknown]

NARRATIVE: CASE EVENT DATE: 20240101
